FAERS Safety Report 14296776 (Version 4)
Quarter: 2018Q1

REPORT INFORMATION
  Report Type: Spontaneous
  Country: US (occurrence: US)
  Receive Date: 20171218
  Receipt Date: 20180314
  Transmission Date: 20180509
  Serious: Yes (Other)
  Sender: FDA-Public Use
  Company Number: US-RECKITT BENCKISER HEALTHCARE INT LIMITED-RB-98859-2017

PATIENT
  Age: 46 Year
  Sex: Male

DRUGS (1)
  1. MUCINEX [Suspect]
     Active Substance: GUAIFENESIN
     Indication: COUGH
     Dosage: 600 MG, SINGLE
     Route: 065
     Dates: start: 20171208, end: 20171208

REACTIONS (14)
  - Skin discolouration [Recovered/Resolved]
  - Haemorrhage [Recovered/Resolved]
  - Eye colour change [Recovered/Resolved]
  - Ocular hyperaemia [Recovered/Resolved]
  - Swelling [Recovered/Resolved]
  - Loss of consciousness [Recovered/Resolved]
  - Post-traumatic stress disorder [Recovered/Resolved]
  - Skin mass [Unknown]
  - Scar [Recovered/Resolved]
  - Vomiting [Recovered/Resolved]
  - Contusion [Recovered/Resolved]
  - Injury [Recovered/Resolved]
  - Fall [Recovered/Resolved]
  - Nausea [Recovered/Resolved]

NARRATIVE: CASE EVENT DATE: 201712
